FAERS Safety Report 26127647 (Version 1)
Quarter: 2025Q4

REPORT INFORMATION
  Report Type: Spontaneous
  Country: US (occurrence: US)
  Receive Date: 20251206
  Receipt Date: 20251206
  Transmission Date: 20260117
  Serious: Yes (Life-Threatening, Other)
  Sender: ASPIRO PHARMA
  Company Number: US-ASPIRO-ASP2025US07378

PATIENT
  Age: 62 Year
  Sex: Male

DRUGS (1)
  1. FUROSEMIDE [Suspect]
     Active Substance: FUROSEMIDE
     Indication: Hypertension
     Dosage: UNK
     Route: 065

REACTIONS (3)
  - Dermatitis exfoliative generalised [Recovered/Resolved]
  - Pemphigoid [Recovered/Resolved]
  - Off label use [Unknown]
